FAERS Safety Report 7876614-3 (Version None)
Quarter: 2011Q4

REPORT INFORMATION
  Report Type: 
  Country: None (occurrence: None)
  Receive Date: 20111031
  Receipt Date: 20100517
  Transmission Date: 20120403
  Serious: No
  Sender: FDA-Public Use
  Company Number: US-BAYER-201022994NA

PATIENT
  Sex: Female

DRUGS (2)
  1. AVELOX [Suspect]
  2. IBUPROFEN [Concomitant]

REACTIONS (1)
  - NO ADVERSE EVENT [None]
